FAERS Safety Report 18677777 (Version 1)
Quarter: 2020Q4

REPORT INFORMATION
  Report Type: Spontaneous
  Country: US (occurrence: US)
  Receive Date: 20201229
  Receipt Date: 20201229
  Transmission Date: 20210114
  Serious: No
  Sender: FDA-Public Use
  Company Number: US-SOMERSET-2020-US-000100

PATIENT
  Age: 88 Year
  Sex: Female

DRUGS (1)
  1. CYANOCOBALAMIN INJECTION - 1 ML [Suspect]
     Active Substance: CYANOCOBALAMIN
     Dosage: 1 ML PER MONTH
     Route: 058
     Dates: start: 20200226, end: 20200227

REACTIONS (2)
  - Injection site pruritus [Recovered/Resolved]
  - Injection site erythema [Recovered/Resolved]

NARRATIVE: CASE EVENT DATE: 20200226
